FAERS Safety Report 15782465 (Version 1)
Quarter: 2019Q1

REPORT INFORMATION
  Report Type: Report from Study
  Country: KR (occurrence: KR)
  Receive Date: 20190102
  Receipt Date: 20190102
  Transmission Date: 20190417
  Serious: Yes (Hospitalization)
  Sender: FDA-Public Use
  Company Number: KR-SA-2018SA394147

PATIENT
  Age: 70 Year
  Sex: Male
  Weight: 69 kg

DRUGS (6)
  1. TAMBOCOR [Concomitant]
     Active Substance: FLECAINIDE ACETATE
     Dosage: UNK
     Dates: start: 20180515
  2. GASTIDINE [CIMETIDINE] [Concomitant]
     Dosage: UNK
     Dates: start: 20180515
  3. DRONEDARONE [Suspect]
     Active Substance: DRONEDARONE
     Indication: ATRIAL FIBRILLATION
     Dosage: UNK
     Dates: start: 20180824
  4. STOGAR [Concomitant]
     Active Substance: LAFUTIDINE
     Dosage: UNK
     Dates: start: 2014
  5. ELIQUIS [Concomitant]
     Active Substance: APIXABAN
     Dosage: 5 MG
     Dates: start: 2014
  6. CARNITIL [ACETYLCARNITINE HYDROCHLORIDE] [Concomitant]
     Dosage: UNK MG
     Dates: start: 2014

REACTIONS (1)
  - Atrial fibrillation [Recovered/Resolved]

NARRATIVE: CASE EVENT DATE: 20181212
